FAERS Safety Report 5416463-9 (Version None)
Quarter: 2007Q3

REPORT INFORMATION
  Report Type: 
  Country: None (occurrence: None)
  Receive Date: 20070814
  Receipt Date: 20070802
  Transmission Date: 20080115
  Serious: Yes (Life-Threatening, Hospitalization)
  Sender: FDA-Public Use
  Company Number: GXKR2007NL06694

PATIENT
  Age: 70 Year
  Sex: Female

DRUGS (1)
  1. PARACETAMOL (NGX)(PARACETAMOL) UNKNOWN [Suspect]

REACTIONS (1)
  - TOXIC EPIDERMAL NECROLYSIS [None]
